FAERS Safety Report 17418793 (Version 7)
Quarter: 2021Q2

REPORT INFORMATION
  Report Type: Spontaneous
  Country: IN (occurrence: IN)
  Receive Date: 20200214
  Receipt Date: 20210614
  Transmission Date: 20210716
  Serious: Yes (Other)
  Sender: FDA-Public Use
  Company Number: IN-PFIZER INC-2018329901

PATIENT
  Age: 63 Year
  Sex: Male

DRUGS (1)
  1. CRIZALK [Suspect]
     Active Substance: CRIZOTINIB
     Indication: ALK GENE REARRANGEMENT POSITIVE
     Dosage: 250 MG, 2X/DAY
     Route: 048
     Dates: start: 20170908

REACTIONS (14)
  - Respiration abnormal [Unknown]
  - Anxiety [Unknown]
  - Speech disorder [Unknown]
  - Tension [Unknown]
  - Depression [Unknown]
  - Myocardial infarction [Unknown]
  - Dysgeusia [Unknown]
  - Blood cholesterol abnormal [Unknown]
  - Dyspnoea [Unknown]
  - Poor quality product administered [Unknown]
  - Product taste abnormal [Unknown]
  - Cardiac disorder [Unknown]
  - Blood glucose abnormal [Unknown]
  - Dysstasia [Unknown]

NARRATIVE: CASE EVENT DATE: 20200129
